FAERS Safety Report 21376527 (Version 1)
Quarter: 2022Q3

REPORT INFORMATION
  Report Type: Report from Study
  Country: DE (occurrence: DE)
  Receive Date: 20220926
  Receipt Date: 20220926
  Transmission Date: 20221027
  Serious: Yes (Other)
  Sender: FDA-Public Use
  Company Number: DE-AMGEN-DEUSL2022162994

PATIENT
  Age: 55 Year
  Sex: Female

DRUGS (4)
  1. ADALIMUMAB [Suspect]
     Active Substance: ADALIMUMAB
     Indication: Crohn^s disease
     Dosage: UNK, QWK
     Route: 065
     Dates: start: 20190213, end: 20220920
  2. ADALIMUMAB [Suspect]
     Active Substance: ADALIMUMAB
     Indication: Rheumatoid arthritis
  3. CORTISONE [Concomitant]
     Active Substance: CORTISONE
     Dosage: 7 MILLIGRAM
  4. CORTISONE [Concomitant]
     Active Substance: CORTISONE
     Dosage: REDUCES THE DOSE BELOW 7 MILLIGRAM (MG)

REACTIONS (2)
  - Thyroid neoplasm [Unknown]
  - Arthropathy [Unknown]
